FAERS Safety Report 5894061-0 (Version None)
Quarter: 2008Q3

REPORT INFORMATION
  Report Type: 
  Country: None (occurrence: None)
  Receive Date: 20080923
  Receipt Date: 20080915
  Transmission Date: 20090109
  Serious: Yes (Death, Hospitalization, Other)
  Sender: FDA-Public Use
  Company Number: US-ELI_LILLY_AND_COMPANY-US200809003213

PATIENT
  Sex: Male

DRUGS (11)
  1. BYETTA [Suspect]
     Indication: TYPE 2 DIABETES MELLITUS
     Dosage: 5 UG, 2/D
     Route: 058
     Dates: start: 20060601, end: 20060620
  2. BYETTA [Suspect]
     Dosage: 10 UG, 2/D
     Route: 058
     Dates: start: 20060628, end: 20060901
  3. BYETTA [Suspect]
     Dosage: 5 UG, 2/D
     Route: 058
     Dates: start: 20060901, end: 20080101
  4. LANTUS [Concomitant]
     Indication: TYPE 2 DIABETES MELLITUS
     Dosage: 24 U, UNKNOWN
     Route: 058
     Dates: end: 20070101
  5. GLUCOPHAGE [Concomitant]
     Indication: TYPE 2 DIABETES MELLITUS
     Dosage: 500 MG, EACH EVENING
     Route: 048
     Dates: end: 20070101
  6. ZOCOR [Concomitant]
     Dosage: 40 MG, EACH EVENING
     Route: 048
  7. ASACOL [Concomitant]
     Indication: COLITIS ULCERATIVE
     Dosage: 800 MG, 2/D
     Route: 048
  8. TOPROL-XL [Concomitant]
     Indication: HYPERTENSION
     Dosage: 50 MG, DAILY (1/D)
     Route: 048
  9. AVAPRO [Concomitant]
     Indication: HYPERTENSION
     Dosage: 300 MG, DAILY (1/D)
     Route: 048
  10. GLUCOSAMINE [Concomitant]
  11. CHONDROITIN [Concomitant]

REACTIONS (6)
  - DEHYDRATION [None]
  - METASTATIC NEOPLASM [None]
  - NAUSEA [None]
  - POSTRENAL FAILURE [None]
  - URETERIC OBSTRUCTION [None]
  - WEIGHT DECREASED [None]
